FAERS Safety Report 13579006 (Version 1)
Quarter: 2017Q2

REPORT INFORMATION
  Report Type: Spontaneous
  Country: US (occurrence: US)
  Receive Date: 20170524
  Receipt Date: 20170524
  Transmission Date: 20170830
  Serious: Yes (Other)
  Sender: FDA-Public Use
  Company Number: None

PATIENT
  Age: 49 Year
  Sex: Female

DRUGS (1)
  1. AVONEX [Suspect]
     Active Substance: INTERFERON BETA-1A
     Indication: MULTIPLE SCLEROSIS
     Dosage: 30MCG/.5M ONCE EVERY WEEK INTRAMUSCULARLY
     Route: 030
     Dates: start: 20170203, end: 20170524

REACTIONS (1)
  - Seizure [None]

NARRATIVE: CASE EVENT DATE: 20170301
